FAERS Safety Report 9727521 (Version 2)
Quarter: 2013Q4

REPORT INFORMATION
  Report Type: Spontaneous
  Country: US (occurrence: US)
  Receive Date: 20131203
  Receipt Date: 20131203
  Transmission Date: 20140711
  Serious: Yes (Other)
  Sender: FDA-Public Use
  Company Number: US-GILEAD-2008-0017206

PATIENT
  Age: 21 Year
  Sex: Female

DRUGS (15)
  1. VIREAD [Suspect]
     Indication: ACQUIRED IMMUNODEFICIENCY SYNDROME
     Dates: start: 20020605, end: 20020726
  2. VIREAD [Suspect]
     Dates: start: 20020814, end: 20020930
  3. VIREAD [Suspect]
     Dates: start: 200709
  4. MARAVIROC [Suspect]
     Indication: ACQUIRED IMMUNODEFICIENCY SYNDROME
     Dates: start: 20070711
  5. NORVIR [Suspect]
     Indication: ACQUIRED IMMUNODEFICIENCY SYNDROME
     Dates: start: 20050726, end: 20060220
  6. NORVIR [Suspect]
     Dates: start: 20070711
  7. TRIZIVIR [Suspect]
     Indication: ACQUIRED IMMUNODEFICIENCY SYNDROME
     Dates: start: 20020605, end: 20030105
  8. TRIZIVIR [Suspect]
     Dates: start: 20030227, end: 20050706
  9. TRIZIVIR [Suspect]
     Dates: start: 20070711
  10. PREZISTA [Suspect]
     Indication: ACQUIRED IMMUNODEFICIENCY SYNDROME
     Dates: start: 20070711
  11. EPZICOM [Suspect]
     Indication: ACQUIRED IMMUNODEFICIENCY SYNDROME
     Dates: start: 20051128
  12. CYMBALTA [Concomitant]
  13. TRAZODONE [Concomitant]
  14. NUVARING [Concomitant]
  15. MIRENA [Concomitant]

REACTIONS (1)
  - Lipodystrophy acquired [Not Recovered/Not Resolved]
